FAERS Safety Report 6215792-9 (Version None)
Quarter: 2009Q2

REPORT INFORMATION
  Report Type: 
  Country: None (occurrence: None)
  Receive Date: 20090603
  Receipt Date: 20090518
  Transmission Date: 20091009
  Serious: Yes (Death, Other)
  Sender: FDA-Public Use
  Company Number: CZ-GENENTECH-280565

PATIENT
  Sex: Female

DRUGS (6)
  1. TRASTUZUMAB [Suspect]
     Indication: BREAST CANCER METASTATIC
     Dosage: 4 MG/KG, SINGLE
     Route: 065
  2. TRASTUZUMAB [Suspect]
     Dosage: UNK MG/KG, UNK
     Route: 065
  3. PACLITAXEL [Suspect]
     Indication: BREAST CANCER METASTATIC
     Dosage: UNK MG/M2, UNK
     Route: 065
  4. DOCETAXEL [Suspect]
     Indication: BREAST CANCER METASTATIC
     Dosage: UNK MG/M2, UNK
     Route: 065
  5. VINORELBINE [Suspect]
     Indication: BREAST CANCER METASTATIC
     Dosage: UNK MG/M2, UNK
     Route: 065
  6. PARAPLATIN [Suspect]
     Indication: BREAST CANCER METASTATIC
     Dosage: 2 AUC, UNK

REACTIONS (6)
  - CARDIOTOXICITY [None]
  - DYSPNOEA [None]
  - INFECTION [None]
  - MALIGNANT NEOPLASM PROGRESSION [None]
  - PNEUMONIA PRIMARY ATYPICAL [None]
  - RASH [None]
